FAERS Safety Report 7138868-0 (Version None)
Quarter: 2010Q4

REPORT INFORMATION
  Report Type: 
  Country: None (occurrence: None)
  Receive Date: 20101206
  Receipt Date: 20101126
  Transmission Date: 20110411
  Serious: Yes (Other)
  Sender: FDA-Public Use
  Company Number: ES-ASTRAZENECA-2010SE56171

PATIENT
  Age: 57 Year
  Sex: Male
  Weight: 80 kg

DRUGS (11)
  1. PROPOFOL [Suspect]
     Indication: ANAESTHESIA PROCEDURE
     Route: 042
  2. PROPOFOL [Suspect]
     Dosage: 650 MG/H (8 MG/KG/H)
     Route: 042
  3. PROPOFOL [Suspect]
     Dosage: 4 MG/KG/H ( 320 MG/H)
     Route: 042
  4. OLANZAPINE [Concomitant]
  5. DEXAMETHASONE [Concomitant]
  6. METHYLPREDNISOLONE [Concomitant]
  7. ANTIBIOTIC THERAPY [Concomitant]
  8. MIDAZOLAM HCL [Concomitant]
  9. REMIFENTANIL [Concomitant]
     Indication: ANAESTHESIA PROCEDURE
     Route: 042
  10. CISATRACURIUM [Concomitant]
     Indication: MUSCLE RELAXANT THERAPY
     Dosage: CONTINUOUS ADMINISTRATION
     Route: 042
  11. MANNITOL [Concomitant]
     Dosage: 0.5 G/KG
     Route: 042

REACTIONS (2)
  - ELECTROCARDIOGRAM ABNORMAL [None]
  - LACTIC ACIDOSIS [None]
